FAERS Safety Report 18197493 (Version 1)
Quarter: 2020Q3

REPORT INFORMATION
  Report Type: Spontaneous
  Country: US (occurrence: US)
  Receive Date: 20200826
  Receipt Date: 20200826
  Transmission Date: 20201103
  Serious: Yes (Other)
  Sender: FDA-Public Use
  Company Number: US-MYLANLABS-2020M1074082

PATIENT
  Sex: Male

DRUGS (5)
  1. DEXTROSE. [Concomitant]
     Active Substance: DEXTROSE
     Indication: PRODUCT USED FOR UNKNOWN INDICATION
     Dosage: IGF METHOTREXATE IV INFUSION IN 250ML OF 5% ?
     Route: 042
  2. METHOTREXATE. [Concomitant]
     Active Substance: METHOTREXATE
     Indication: MYELODYSPLASTIC SYNDROME
     Dosage: 0.20 MICROEQ/KG IGF?METHOTREXATE AS A 90?MIN INFUSION IN 250 ML OF ..
     Route: 042
  3. DECITABINE. [Suspect]
     Active Substance: DECITABINE
     Indication: MYELODYSPLASTIC SYNDROME
     Dosage: 8 CYCLES
     Route: 065
     Dates: start: 201611, end: 201802
  4. LOSARTAN. [Suspect]
     Active Substance: LOSARTAN
     Indication: HYPERTENSION
     Dosage: UNK
     Route: 065
  5. AZACITIDINE. [Suspect]
     Active Substance: AZACITIDINE
     Indication: MYELODYSPLASTIC SYNDROME
     Dosage: UNK UNK,20 CYCLES
     Route: 065
     Dates: start: 201504, end: 201611

REACTIONS (4)
  - Drug ineffective [Unknown]
  - Cytopenia [Recovered/Resolved]
  - Syncope [Unknown]
  - Orthostatic hypotension [Unknown]
